FAERS Safety Report 14307964 (Version 7)
Quarter: 2018Q2

REPORT INFORMATION
  Report Type: Report from Study
  Country: US (occurrence: US)
  Receive Date: 20171220
  Receipt Date: 20180522
  Transmission Date: 20180711
  Serious: Yes (Other)
  Sender: FDA-Public Use
  Company Number: US-TESARO, INC.-US-2017TSO04485

PATIENT

DRUGS (5)
  1. ZEJULA [Suspect]
     Active Substance: NIRAPARIB
     Indication: OVARIAN CANCER
     Dosage: 300 MG, UNK
     Route: 048
     Dates: start: 20170811
  2. ZEJULA [Suspect]
     Active Substance: NIRAPARIB
     Dosage: 200 MG, QOD
     Route: 048
  3. ZEJULA [Suspect]
     Active Substance: NIRAPARIB
     Dosage: 300 MG, QD
     Route: 048
     Dates: end: 20180426
  4. ZEJULA [Suspect]
     Active Substance: NIRAPARIB
     Dosage: 200 MG, QOD
     Route: 048
     Dates: end: 201801
  5. ZEJULA [Suspect]
     Active Substance: NIRAPARIB
     Dosage: 300 MG, QD
     Route: 048
     Dates: start: 201801

REACTIONS (19)
  - Pain in jaw [Unknown]
  - Blood pressure increased [Not Recovered/Not Resolved]
  - Hydronephrosis [Not Recovered/Not Resolved]
  - Temporomandibular joint syndrome [Unknown]
  - Pain in extremity [Unknown]
  - Depressed mood [Unknown]
  - Cough [Unknown]
  - Headache [Recovering/Resolving]
  - Emotional distress [Not Recovered/Not Resolved]
  - Myalgia [Unknown]
  - Blood creatinine increased [Not Recovered/Not Resolved]
  - Hypokinesia [Unknown]
  - Drug ineffective [Unknown]
  - Renal impairment [Not Recovered/Not Resolved]
  - Infection [Unknown]
  - Inappropriate schedule of drug administration [Recovered/Resolved]
  - Wheezing [Unknown]
  - Carbohydrate antigen 125 increased [Not Recovered/Not Resolved]
  - Anxiety [Unknown]
